FAERS Safety Report 6104122-9 (Version None)
Quarter: 2009Q1

REPORT INFORMATION
  Report Type: 
  Country: None (occurrence: None)
  Receive Date: 20090305
  Receipt Date: 20090224
  Transmission Date: 20090719
  Serious: Yes (Death)
  Sender: FDA-Public Use
  Company Number: FR-TEVA-186216ISR

PATIENT
  Age: 52 Year
  Sex: Male

DRUGS (7)
  1. CLARITHROMYCIN [Suspect]
  2. RIFATER [Suspect]
  3. ETHAMBUTOL HCL [Suspect]
  4. OXAZEPAM [Concomitant]
  5. VENLAFAXINE HCL [Concomitant]
  6. DISULFIRAM [Concomitant]
  7. ACAMPROSATE [Concomitant]

REACTIONS (1)
  - DRUG INEFFECTIVE [None]
